FAERS Safety Report 9259681 (Version 2)
Quarter: 2013Q2

REPORT INFORMATION
  Report Type: Spontaneous
  Country: US (occurrence: US)
  Receive Date: 20130429
  Receipt Date: 20130527
  Transmission Date: 20140414
  Serious: Yes (Hospitalization)
  Sender: FDA-Public Use
  Company Number: US-BIOGENIDEC-2013BI037171

PATIENT
  Age: 49 Year
  Sex: Male

DRUGS (8)
  1. TYSABRI [Suspect]
     Indication: MULTIPLE SCLEROSIS
     Route: 042
     Dates: start: 20111230
  2. GABAPENTIN [Concomitant]
  3. TRAZODONE [Concomitant]
  4. LISINOPRIL [Concomitant]
  5. MORPHINE [Concomitant]
  6. VICODIN [Concomitant]
  7. HYDROCLOROTHIAZIDE [Concomitant]
  8. PROPRANOLOL [Concomitant]

REACTIONS (1)
  - Cholecystitis [Recovered/Resolved]
